FAERS Safety Report 16111907 (Version 1)
Quarter: 2019Q1

REPORT INFORMATION
  Report Type: Spontaneous
  Country: JP (occurrence: JP)
  Receive Date: 20190325
  Receipt Date: 20190325
  Transmission Date: 20190418
  Serious: Yes (Hospitalization)
  Sender: FDA-Public Use
  Company Number: JP-ORPHAN EUROPE-2064489

PATIENT
  Age: 12 Month
  Sex: Male
  Weight: 9.29 kg

DRUGS (5)
  1. CYSTADANE [Suspect]
     Active Substance: BETAINE
     Indication: HOMOCYSTINURIA
     Route: 048
     Dates: start: 20151222
  2. TEGRETOL [Concomitant]
     Active Substance: CARBAMAZEPINE
  3. BIOTIINI [Concomitant]
     Dates: start: 20151228
  4. FRESMIN S [Concomitant]
     Active Substance: HYDROXOCOBALAMIN
  5. ELCARTIN [Concomitant]

REACTIONS (1)
  - Dehydration [Recovered/Resolved]

NARRATIVE: CASE EVENT DATE: 20160913
